FAERS Safety Report 10538474 (Version 2)
Quarter: 2014Q4

REPORT INFORMATION
  Report Type: Report from Study
  Country: GB (occurrence: GB)
  Receive Date: 20141023
  Receipt Date: 20141023
  Transmission Date: 20150529
  Serious: Yes (Death, Hospitalization, Other)
  Sender: FDA-Public Use
  Company Number: GB-GLAXOSMITHKLINE-B0828171D

PATIENT

DRUGS (8)
  1. IPRATROPIUM NEBULES [Concomitant]
     Indication: CHRONIC OBSTRUCTIVE PULMONARY DISEASE
     Dosage: 250 004 QID
     Route: 055
     Dates: start: 20111220
  2. AZITHROMYCIN [Concomitant]
     Active Substance: AZITHROMYCIN ANHYDROUS
     Indication: CHRONIC OBSTRUCTIVE PULMONARY DISEASE
     Dosage: 250 003 OD
     Route: 048
     Dates: start: 20121205
  3. SALINE NEBULES [Concomitant]
     Indication: CHRONIC OBSTRUCTIVE PULMONARY DISEASE
     Dosage: 5 012 QID
     Route: 055
     Dates: start: 20130218
  4. MUCODYNE [Concomitant]
     Active Substance: CARBOCYSTEINE
     Indication: CHRONIC OBSTRUCTIVE PULMONARY DISEASE
     Dosage: 750 003 TID
     Route: 048
     Dates: start: 20090113
  5. FLUTICASONE PROPIONATE+SALMETEROL XINAFOATE [Suspect]
     Active Substance: FLUTICASONE PROPIONATE\SALMETEROL XINAFOATE
     Indication: CHRONIC OBSTRUCTIVE PULMONARY DISEASE
     Dosage: 500/50 UG, BID
     Route: 055
     Dates: start: 20120806, end: 20130224
  6. THEOPHYLLINE [Concomitant]
     Active Substance: THEOPHYLLINE ANHYDROUS
     Indication: CHRONIC OBSTRUCTIVE PULMONARY DISEASE
     Dosage: 250 003 BID
     Route: 048
     Dates: start: 20100108
  7. SALINE NEBULES [Concomitant]
     Dosage: 5 012 QID
     Route: 055
     Dates: start: 20120926, end: 20130211
  8. SERETIDE (FLUTICASONE + SALMETEROL) [Concomitant]
     Indication: CHRONIC OBSTRUCTIVE PULMONARY DISEASE
     Dosage: 500/50 004 BID
     Route: 055
     Dates: start: 20040805, end: 20120805

REACTIONS (1)
  - Infective exacerbation of chronic obstructive airways disease [Fatal]

NARRATIVE: CASE EVENT DATE: 20130209
